FAERS Safety Report 6096609-2 (Version None)
Quarter: 2009Q1

REPORT INFORMATION
  Report Type: 
  Country: None (occurrence: None)
  Receive Date: 20090225
  Receipt Date: 20090225
  Transmission Date: 20090719
  Serious: Yes (Life-Threatening)
  Sender: FDA-Public Use
  Company Number: None

PATIENT
  Sex: Female
  Weight: 80.7403 kg

DRUGS (5)
  1. LISINOPRIL [Suspect]
     Indication: HYPERTENSION
     Dosage: 1 TABLET BEFORE BEDTIME PINK SCORED, OVAL TABLET FRONT: E54
     Dates: start: 20090115
  2. LISINOPRIL [Suspect]
     Indication: HYPERTENSION
     Dosage: 1 TABLET BEFORE BEDTIME PINK SCORED, OVAL TABLET FRONT: E54
     Dates: start: 20090116
  3. LISINOPRIL [Suspect]
     Indication: HYPERTENSION
     Dosage: 1 TABLET BEFORE BEDTIME PINK SCORED, OVAL TABLET FRONT: E54
     Dates: start: 20090117
  4. LISINOPRIL [Suspect]
     Indication: HYPERTENSION
     Dosage: 1 TABLET BEFORE BEDTIME PINK SCORED, OVAL TABLET FRONT: E54
     Dates: start: 20090118
  5. LISINOPRIL [Suspect]
     Indication: HYPERTENSION
     Dosage: 1 TABLET BEFORE BEDTIME PINK SCORED, OVAL TABLET FRONT: E54
     Dates: start: 20090119

REACTIONS (11)
  - BLOOD PRESSURE INCREASED [None]
  - CHEST PAIN [None]
  - DIZZINESS [None]
  - HEADACHE [None]
  - HEART RATE INCREASED [None]
  - HYPERHIDROSIS [None]
  - MALAISE [None]
  - MORBID THOUGHTS [None]
  - MUSCULAR WEAKNESS [None]
  - PALPITATIONS [None]
  - POLLAKIURIA [None]
